FAERS Safety Report 6217803-3 (Version None)
Quarter: 2009Q2

REPORT INFORMATION
  Report Type: 
  Country: None (occurrence: None)
  Receive Date: 20090608
  Receipt Date: 20090603
  Transmission Date: 20091009
  Serious: Yes (Other)
  Sender: FDA-Public Use
  Company Number: TW-ABBOTT-09P-153-0574383-00

PATIENT
  Age: 29 Year
  Sex: Female
  Weight: 57 kg

DRUGS (3)
  1. REDUCTIL 10MG [Suspect]
     Indication: WEIGHT CONTROL
     Dosage: ONCE DAILY-28 CAPSULES TAKEN TOTAL
     Route: 048
     Dates: start: 20090201
  2. REDUCTIL 10MG [Suspect]
     Dosage: ONCE DAILY-56 CAPSULES TAKEN TOTAL
     Route: 048
     Dates: start: 20090101, end: 20090101
  3. REDUCTIL 10MG [Suspect]
     Route: 048
     Dates: start: 20090101

REACTIONS (1)
  - ABORTION INDUCED [None]
